FAERS Safety Report 8543672-2 (Version None)
Quarter: 2012Q3

REPORT INFORMATION
  Report Type: 
  Country: None (occurrence: None)
  Receive Date: 20120727
  Receipt Date: 20120716
  Transmission Date: 20120928
  Serious: Yes (Hospitalization, Disabling)
  Sender: FDA-Public Use
  Company Number: US-BAYER-2012-031701

PATIENT
  Age: 23 Year
  Sex: Female
  Weight: 88.435 kg

DRUGS (3)
  1. YAZ [Suspect]
     Indication: ACNE
     Dosage: UNK
     Dates: start: 20080101, end: 20100101
  2. YASMIN [Suspect]
     Indication: ACNE
     Dosage: UNK
     Dates: start: 20080101, end: 20100101
  3. CENTRALLY ACTING SYMPATHOMIMETICS [Concomitant]
     Indication: DISTURBANCE IN ATTENTION

REACTIONS (6)
  - PAIN [None]
  - CEREBROVASCULAR ACCIDENT [None]
  - MENTAL DISORDER [None]
  - MIGRAINE [None]
  - MEMORY IMPAIRMENT [None]
  - GLAUCOMA [None]
